FAERS Safety Report 18574327 (Version 1)
Quarter: 2020Q4

REPORT INFORMATION
  Report Type: Spontaneous
  Country: US (occurrence: US)
  Receive Date: 20201203
  Receipt Date: 20201203
  Transmission Date: 20210114
  Serious: No
  Sender: FDA-Public Use
  Company Number: US-GLAXOSMITHKLINE-US2020231893

PATIENT
  Age: 64 Year
  Sex: Female

DRUGS (1)
  1. BREO ELLIPTA [Suspect]
     Active Substance: FLUTICASONE FUROATE\VILANTEROL TRIFENATATE
     Indication: ASTHMA
     Dosage: UNK
     Route: 065
     Dates: start: 202010

REACTIONS (7)
  - Hyperchlorhydria [Unknown]
  - Taste disorder [Recovering/Resolving]
  - Dysgeusia [Recovering/Resolving]
  - Parosmia [Recovering/Resolving]
  - Abdominal pain upper [Unknown]
  - Dysphonia [Unknown]
  - Throat irritation [Unknown]

NARRATIVE: CASE EVENT DATE: 202010
